FAERS Safety Report 9420645 (Version 2)
Quarter: 2013Q4

REPORT INFORMATION
  Report Type: Spontaneous
  Country: US (occurrence: US)
  Receive Date: 20130725
  Receipt Date: 20131115
  Transmission Date: 20140711
  Serious: No
  Sender: FDA-Public Use
  Company Number: US-B.I. PHARMACEUTICALS,INC./RIDGEFIELD-2013-BI-14581BP

PATIENT
  Sex: Female
  Weight: 79.38 kg

DRUGS (1)
  1. PRADAXA [Suspect]
     Indication: ATRIAL FIBRILLATION
     Dates: start: 20110713, end: 20120606

REACTIONS (4)
  - Gastrointestinal haemorrhage [Unknown]
  - Haemorrhage [Unknown]
  - Contusion [Unknown]
  - Fatigue [Unknown]
